FAERS Safety Report 4639110-2 (Version None)
Quarter: 2005Q2

REPORT INFORMATION
  Report Type: 
  Country: None (occurrence: None)
  Receive Date: 20050418
  Receipt Date: 20050331
  Transmission Date: 20051028
  Serious: Yes (Hospitalization)
  Sender: FDA-Public Use
  Company Number: DSA_26221_2005

PATIENT
  Age: 78 Year
  Sex: Female

DRUGS (6)
  1. TEMESTA [Suspect]
     Dates: end: 20050114
  2. AMLOR [Suspect]
     Indication: HYPERTENSION
     Dosage: 1 DF Q DAY PO
     Route: 048
     Dates: end: 20050114
  3. CELECTOL [Suspect]
     Indication: HYPERTENSION
     Dosage: 1 DF Q DAY PO
     Route: 048
     Dates: end: 20050114
  4. CORVASAL [Suspect]
     Dosage: 1 DF Q DAY PO
     Route: 048
     Dates: end: 20050114
  5. ECAZIDE [Suspect]
     Indication: HYPERTENSION
     Dosage: 1 DF Q DAY PO
     Route: 048
     Dates: end: 20050114
  6. LIPANTHYL ^BRISTOL-MYERS SQUIBB^ [Suspect]
     Dates: end: 20050114

REACTIONS (2)
  - FALL [None]
  - ORTHOSTATIC HYPOTENSION [None]
